FAERS Safety Report 4999199-8 (Version None)
Quarter: 2006Q2

REPORT INFORMATION
  Report Type: 
  Country: None (occurrence: None)
  Receive Date: 20060509
  Receipt Date: 20060509
  Transmission Date: 20061013
  Serious: Yes (Hospitalization)
  Sender: FDA-Public Use
  Company Number: None

PATIENT
  Sex: Female
  Weight: 117.6 kg

DRUGS (2)
  1. CYTARABINE [Suspect]
     Indication: B PRECURSOR TYPE ACUTE LEUKAEMIA
     Dosage: 135 MG DAY 1 - 5 IV DRIP
     Route: 041
     Dates: start: 20060424, end: 20060428
  2. ETOPOSIDE [Suspect]
     Indication: B PRECURSOR TYPE ACUTE LEUKAEMIA
     Dosage: 180 MG DAY 1-5 IV DRIP
     Route: 041
     Dates: start: 20060424, end: 20060428

REACTIONS (2)
  - NEUTROPENIA [None]
  - THROMBOCYTOPENIA [None]
